FAERS Safety Report 8587284-3 (Version None)
Quarter: 2012Q3

REPORT INFORMATION
  Report Type: 
  Country: None (occurrence: None)
  Receive Date: 20120810
  Receipt Date: 20120302
  Transmission Date: 20120928
  Serious: Yes (Other)
  Sender: FDA-Public Use
  Company Number: US-ASTRAZENECA-2012SE14783

PATIENT
  Sex: Female

DRUGS (3)
  1. AROMASIN [Suspect]
     Route: 048
  2. ARIMIDEX [Suspect]
     Route: 048
     Dates: start: 20120101
  3. ARIMIDEX [Suspect]
     Indication: BREAST CANCER
     Route: 048

REACTIONS (4)
  - LIVER DISORDER [None]
  - NAUSEA [None]
  - METASTASES TO BONE [None]
  - HEADACHE [None]
